FAERS Safety Report 9012691 (Version 2)
Quarter: 2013Q1

REPORT INFORMATION
  Report Type: Spontaneous
  Country: US (occurrence: US)
  Receive Date: 20130114
  Receipt Date: 20130124
  Transmission Date: 20140127
  Serious: No
  Sender: FDA-Public Use
  Company Number: US-009507513-1301USA005082

PATIENT
  Age: 79 Year
  Sex: Male

DRUGS (2)
  1. ASMANEX TWISTHALER [Suspect]
     Indication: BRONCHITIS
     Dosage: 1 DF, QD
     Route: 055
     Dates: start: 20130109
  2. COUMADIN [Concomitant]

REACTIONS (3)
  - Drug dose omission [Unknown]
  - Product taste abnormal [Unknown]
  - Product quality issue [Unknown]
